FAERS Safety Report 9474950 (Version 1)
Quarter: 2013Q3

REPORT INFORMATION
  Report Type: Spontaneous
  Country: JP (occurrence: JP)
  Receive Date: 20130824
  Receipt Date: 20130824
  Transmission Date: 20140515
  Serious: Yes (Other)
  Sender: FDA-Public Use
  Company Number: JP-JNJFOC-20130808561

PATIENT
  Sex: Female

DRUGS (3)
  1. LOPERAMIDE HYDROCHLORIDE [Suspect]
     Route: 048
  2. LOPERAMIDE HYDROCHLORIDE [Suspect]
     Indication: PROPHYLAXIS AGAINST DIARRHOEA
     Route: 048
  3. PROGRAF [Interacting]
     Indication: IMMUNOSUPPRESSANT DRUG THERAPY
     Route: 050

REACTIONS (2)
  - Neurotoxicity [Recovering/Resolving]
  - Drug interaction [Recovering/Resolving]
